FAERS Safety Report 5050836-1 (Version None)
Quarter: 2006Q3

REPORT INFORMATION
  Report Type: 
  Country: None (occurrence: None)
  Receive Date: 20060710
  Receipt Date: 20060627
  Transmission Date: 20061208
  Serious: Yes (Other)
  Sender: FDA-Public Use
  Company Number: 2006081468

PATIENT
  Age: 78 Year
  Sex: Female

DRUGS (1)
  1. CELEBREX [Suspect]

REACTIONS (3)
  - CONFUSIONAL STATE [None]
  - CSF LYMPHOCYTE COUNT ABNORMAL [None]
  - CSF PROTEIN INCREASED [None]
